FAERS Safety Report 17075307 (Version 1)
Quarter: 2019Q4

REPORT INFORMATION
  Report Type: Spontaneous
  Country: US (occurrence: US)
  Receive Date: 20191125
  Receipt Date: 20191125
  Transmission Date: 20200122
  Serious: No
  Sender: FDA-Public Use
  Company Number: None

PATIENT
  Age: 53 Year
  Sex: Female
  Weight: 72 kg

DRUGS (5)
  1. REPATHA [Suspect]
     Active Substance: EVOLOCUMAB
     Indication: BLOOD CHOLESTEROL INCREASED
     Dosage: ?          QUANTITY:1 INJECTION(S);OTHER FREQUENCY:2 WEEKS;OTHER ROUTE:INJECTION?
     Dates: start: 20191003, end: 20191114
  2. GLIMEPRIDE [Concomitant]
     Active Substance: GLIMEPIRIDE
  3. NOVOLOG [Concomitant]
     Active Substance: INSULIN ASPART
  4. VITAMIN C [Concomitant]
     Active Substance: ASCORBIC ACID
  5. METPHORINE [Concomitant]

REACTIONS (3)
  - Blood glucose increased [None]
  - Back pain [None]
  - Influenza like illness [None]

NARRATIVE: CASE EVENT DATE: 20191107
